FAERS Safety Report 6261905-2 (Version None)
Quarter: 2009Q3

REPORT INFORMATION
  Report Type: 
  Country: None (occurrence: None)
  Receive Date: 20090709
  Receipt Date: 20090707
  Transmission Date: 20100115
  Serious: Yes (Hospitalization)
  Sender: FDA-Public Use
  Company Number: A0796022A

PATIENT
  Age: 43 Year
  Sex: Male

DRUGS (1)
  1. AVANDIA [Suspect]
     Indication: DIABETES MELLITUS
     Dosage: 4MG PER DAY
     Route: 048
     Dates: start: 20040520, end: 20041203

REACTIONS (6)
  - CARDIAC FAILURE CONGESTIVE [None]
  - DYSPNOEA [None]
  - FLUID RETENTION [None]
  - OEDEMA PERIPHERAL [None]
  - RENAL FAILURE [None]
  - VISION BLURRED [None]
